FAERS Safety Report 9290392 (Version 2)
Quarter: 2013Q2

REPORT INFORMATION
  Report Type: Spontaneous
  Country: US (occurrence: US)
  Receive Date: 20130515
  Receipt Date: 20130531
  Transmission Date: 20140414
  Serious: Yes (Hospitalization, Other)
  Sender: FDA-Public Use
  Company Number: US-ASTELLAS-2013US003620

PATIENT
  Age: 62 Year
  Sex: Male

DRUGS (4)
  1. XTANDI [Suspect]
     Indication: PROSTATE CANCER
     Dosage: 160 MG, UID/QD
     Route: 048
  2. XTANDI [Suspect]
     Dosage: 120 MG, UID/QD
     Route: 048
  3. XTANDI [Suspect]
     Dosage: 160 MG, UID/QD
     Route: 048
     Dates: start: 20130118
  4. XGEVA [Concomitant]
     Indication: PRODUCT USED FOR UNKNOWN INDICATION
     Dosage: UNK
     Route: 065

REACTIONS (7)
  - Dehydration [Unknown]
  - Diarrhoea [Unknown]
  - Hyperhidrosis [Unknown]
  - Gait disturbance [Unknown]
  - Myalgia [Unknown]
  - Arthralgia [Unknown]
  - Prostatic specific antigen increased [Unknown]
